FAERS Safety Report 5411795-2 (Version None)
Quarter: 2007Q3

REPORT INFORMATION
  Report Type: 
  Country: None (occurrence: None)
  Receive Date: 20070813
  Receipt Date: 20070810
  Transmission Date: 20080115
  Serious: Yes (Death, Disabling, Other)
  Sender: FDA-Public Use
  Company Number: PHNU2007DE02810

PATIENT
  Sex: Female

DRUGS (7)
  1. ZOMETA [Suspect]
     Indication: MULTIPLE MYELOMA
     Dosage: 4 MG, QD
     Route: 042
     Dates: start: 20011201
  2. CLINDAMYCIN HCL [Concomitant]
     Indication: INFLAMMATION
     Dosage: 600 MG, UNK
     Route: 042
  3. DURAGESIC-100 [Concomitant]
     Route: 065
  4. NEORECORMON [Concomitant]
     Route: 065
  5. CARBAMAZEPINE [Concomitant]
     Route: 065
  6. REMINYL                                 /UNK/ [Concomitant]
     Route: 065
  7. NOVALGIN                                /SCH/ [Concomitant]
     Route: 065

REACTIONS (6)
  - BONE DISORDER [None]
  - DEATH [None]
  - GENERAL PHYSICAL HEALTH DETERIORATION [None]
  - OSTEONECROSIS [None]
  - PERIODONTITIS [None]
  - SEPSIS [None]
